FAERS Safety Report 4492452-6 (Version None)
Quarter: 2004Q4

REPORT INFORMATION
  Report Type: 
  Country: None (occurrence: None)
  Receive Date: 20041029
  Receipt Date: 20041019
  Transmission Date: 20050328
  Serious: Yes (Hospitalization)
  Sender: FDA-Public Use
  Company Number: 2004080726

PATIENT
  Age: 68 Year
  Sex: Female

DRUGS (5)
  1. CARDENALIN (DOXAZOSIN) [Suspect]
     Indication: ILL-DEFINED DISORDER
     Dosage: ORAL
     Route: 048
  2. QUINAPRIL HCL [Suspect]
     Indication: ILL-DEFINED DISORDER
     Dosage: ORAL
     Route: 048
  3. VANCOMYCIN [Suspect]
     Indication: IMPLANT SITE INFECTION
     Dosage: INTRAVENOUS
     Route: 042
  4. MINOCYCLINE HYDROCHLORIDE [Suspect]
     Indication: IMPLANT SITE INFECTION
  5. GALENIC / PANIPENEM/BETAMIPRON/ (BETAMIPRON, PANIPENEM) [Suspect]
     Indication: IMPLANT SITE INFECTION

REACTIONS (1)
  - PANCYTOPENIA [None]
